FAERS Safety Report 14466284 (Version 2)
Quarter: 2018Q1

REPORT INFORMATION
  Report Type: Spontaneous
  Country: US (occurrence: US)
  Receive Date: 20180131
  Receipt Date: 20180327
  Transmission Date: 20180509
  Serious: No
  Sender: FDA-Public Use
  Company Number: US-ASTRAZENECA-2018SE11865

PATIENT

DRUGS (4)
  1. SYNAGIS [Suspect]
     Active Substance: PALIVIZUMAB
     Indication: LOWER RESPIRATORY TRACT INFECTION
     Route: 030
     Dates: start: 20180116
  2. SYNAGIS [Suspect]
     Active Substance: PALIVIZUMAB
     Indication: RESPIRATORY SYNCYTIAL VIRUS INFECTION
     Route: 030
     Dates: start: 20180116
  3. SYNAGIS [Suspect]
     Active Substance: PALIVIZUMAB
     Indication: LOWER RESPIRATORY TRACT INFECTION
     Route: 030
     Dates: start: 20171121
  4. SYNAGIS [Suspect]
     Active Substance: PALIVIZUMAB
     Indication: RESPIRATORY SYNCYTIAL VIRUS INFECTION
     Route: 030
     Dates: start: 20171121

REACTIONS (2)
  - Decreased activity [Recovering/Resolving]
  - Generalised erythema [Not Recovered/Not Resolved]
